FAERS Safety Report 23762110 (Version 1)
Quarter: 2024Q2

REPORT INFORMATION
  Report Type: Other
  Country: AU (occurrence: AU)
  Receive Date: 20240419
  Receipt Date: 20240419
  Transmission Date: 20240716
  Serious: Yes (Life-Threatening)
  Sender: FDA-Public Use
  Company Number: AU-B.Braun Medical Inc.-2155776

PATIENT
  Sex: Male

DRUGS (7)
  1. DEXTROSE\LIDOCAINE HYDROCHLORIDE [Suspect]
     Active Substance: DEXTROSE\LIDOCAINE HYDROCHLORIDE
     Indication: Ventricular tachycardia
  2. DEXTROSE\LIDOCAINE HYDROCHLORIDE [Suspect]
     Active Substance: DEXTROSE\LIDOCAINE HYDROCHLORIDE
     Indication: Ventricular fibrillation
  3. MAGNESIUM SULFATE [Suspect]
     Active Substance: MAGNESIUM SULFATE\MAGNESIUM SULFATE HEPTAHYDRATE
  4. AMIODARONE [Suspect]
     Active Substance: AMIODARONE
  5. ATROPINE [Suspect]
     Active Substance: ATROPINE\ATROPINE SULFATE
  6. EPINEPHRINE [Suspect]
     Active Substance: EPINEPHRINE
  7. POTASSIUM CHLORIDE [Suspect]
     Active Substance: POTASSIUM CHLORIDE

REACTIONS (1)
  - Drug ineffective [Unknown]
